FAERS Safety Report 18962876 (Version 1)
Quarter: 2021Q1

REPORT INFORMATION
  Report Type: Spontaneous
  Country: US (occurrence: US)
  Receive Date: 20210303
  Receipt Date: 20210303
  Transmission Date: 20210420
  Serious: No
  Sender: FDA-Public Use
  Company Number: None

PATIENT
  Sex: Male

DRUGS (1)
  1. NINLARO [Suspect]
     Active Substance: IXAZOMIB CITRATE
     Indication: PROSTATE CANCER
     Dosage: DAILY ON DAYYS 1,8 AND 15
     Route: 048
     Dates: start: 202101, end: 202102

REACTIONS (1)
  - Drug ineffective [None]
